FAERS Safety Report 6235736-3 (Version None)
Quarter: 2009Q2

REPORT INFORMATION
  Report Type: 
  Country: None (occurrence: None)
  Receive Date: 20090619
  Receipt Date: 20090605
  Transmission Date: 20091009
  Serious: Yes (Death)
  Sender: FDA-Public Use
  Company Number: IT-RANBAXY-2009RR-24863

PATIENT
  Sex: Male

DRUGS (1)
  1. SIMVASTATIN [Suspect]

REACTIONS (4)
  - ASTHENIA [None]
  - OLIGURIA [None]
  - RENAL FAILURE [None]
  - RHABDOMYOLYSIS [None]
